FAERS Safety Report 13738938 (Version 1)
Quarter: 2017Q3

REPORT INFORMATION
  Report Type: Spontaneous
  Country: US (occurrence: US)
  Receive Date: 20170710
  Receipt Date: 20170710
  Transmission Date: 20171127
  Serious: Yes (Other)
  Sender: FDA-Public Use
  Company Number: US-SAOL THERAPEUTICS-2017SAO00584

PATIENT
  Age: 35 Year
  Sex: Female
  Weight: 98.41 kg

DRUGS (14)
  1. LIORESAL [Suspect]
     Active Substance: BACLOFEN
     Indication: MUSCLE SPASTICITY
     Dosage: 1123 ?G, \DAY
     Route: 037
     Dates: start: 20110805
  2. LIORESAL [Suspect]
     Active Substance: BACLOFEN
     Indication: CEREBROVASCULAR ACCIDENT
     Dosage: UNK
     Dates: start: 20170308
  3. PRILOSEC [Concomitant]
     Active Substance: OMEPRAZOLE MAGNESIUM
  4. DITROPAN [Concomitant]
     Active Substance: OXYBUTYNIN CHLORIDE
  5. TYLENOL [Concomitant]
     Active Substance: ACETAMINOPHEN
  6. CHANTIX [Concomitant]
     Active Substance: VARENICLINE TARTRATE
  7. VOLTAREN [Concomitant]
     Active Substance: DICLOFENAC SODIUM
  8. FLORAJEN-3 [Concomitant]
  9. ALBUTEROL INHALER [Concomitant]
     Active Substance: ALBUTEROL
  10. ULTRAM [Concomitant]
     Active Substance: TRAMADOL HYDROCHLORIDE
  11. ASPIRIN. [Concomitant]
     Active Substance: ASPIRIN
  12. WELLBUTRIN [Concomitant]
     Active Substance: BUPROPION HYDROCHLORIDE
  13. ZYRTEC [Concomitant]
     Active Substance: CETIRIZINE HYDROCHLORIDE
  14. SINGULAIR [Concomitant]
     Active Substance: MONTELUKAST SODIUM

REACTIONS (3)
  - Muscle tightness [Not Recovered/Not Resolved]
  - Feeling abnormal [Recovered/Resolved]
  - Device battery issue [Unknown]

NARRATIVE: CASE EVENT DATE: 20170317
